FAERS Safety Report 5474249-3 (Version None)
Quarter: 2007Q4

REPORT INFORMATION
  Report Type: 
  Country: None (occurrence: None)
  Receive Date: 20071002
  Receipt Date: 20070622
  Transmission Date: 20080405
  Serious: No
  Sender: FDA-Public Use
  Company Number: US-ASTRAZENECA-2007UW13155

PATIENT
  Age: 25710 Day
  Sex: Female
  Weight: 75 kg

DRUGS (2)
  1. ARIMIDEX [Suspect]
     Indication: BREAST CANCER
     Route: 048
     Dates: start: 20051201
  2. SYNTHROID [Concomitant]
     Indication: HYPOTHYROIDISM
     Route: 048

REACTIONS (3)
  - BALANCE DISORDER [None]
  - DYSPNOEA [None]
  - HAIR TEXTURE ABNORMAL [None]
